FAERS Safety Report 5286893-7 (Version None)
Quarter: 2007Q1

REPORT INFORMATION
  Report Type: 
  Country: None (occurrence: None)
  Receive Date: 20070329
  Receipt Date: 20070320
  Transmission Date: 20070707
  Serious: Yes (Other)
  Sender: FDA-Public Use
  Company Number: 238596

PATIENT
  Age: 36 Year
  Sex: Male

DRUGS (1)
  1. RAPTIVA [Suspect]
     Indication: PSORIASIS
     Dosage: 1/WEEK, SUBCUTANEOUS
     Route: 058
     Dates: start: 20051106

REACTIONS (3)
  - HAEMOCHROMATOSIS [None]
  - HEPATOSPLENOMEGALY [None]
  - LIVER FUNCTION TEST ABNORMAL [None]
